FAERS Safety Report 16329014 (Version 1)
Quarter: 2020Q3

REPORT INFORMATION
  Report Type: Report from Study
  Country: DE (occurrence: DE)
  Receive Date: 20190519
  Receipt Date: 20190519
  Transmission Date: 20201105
  Serious: Yes (Hospitalization)
  Sender: FDA-Public Use
  Company Number: DE-ROCHE-2320517

PATIENT
  Age: 42 Year
  Sex: Female

DRUGS (3)
  1. IPATASERTIB. [Suspect]
     Active Substance: IPATASERTIB
     Indication: BREAST CANCER
     Dosage: ON 06/MAY/2019, SHE RECEIVED 2X200 MG LAST DOSE OF IPATASERTIB
     Route: 048
     Dates: start: 20190425
  2. ATEZOLIZUMAB. [Suspect]
     Active Substance: ATEZOLIZUMAB
     Indication: BREAST CANCER
     Route: 042
     Dates: start: 20190425
  3. LOPERAMID [Concomitant]
     Active Substance: LOPERAMIDE

REACTIONS (1)
  - Vascular device infection [Recovering/Resolving]

NARRATIVE: CASE EVENT DATE: 20190506
